FAERS Safety Report 4362847-X (Version None)
Quarter: 2004Q2

REPORT INFORMATION
  Report Type: 
  Country: None (occurrence: None)
  Receive Date: 20040518
  Receipt Date: 20040517
  Transmission Date: 20050107
  Serious: Yes (Other)
  Sender: FDA-Public Use
  Company Number: HQWYE723706MAY04

PATIENT
  Age: 44 Year
  Sex: Male

DRUGS (1)
  1. ADVIL [Suspect]
     Indication: ANALGESIC THERAPY
     Dosage: 3, 200 MG AT ONE TIME, ORAL
     Route: 048
     Dates: start: 20040505, end: 20040505

REACTIONS (2)
  - ANAPHYLACTIC REACTION [None]
  - OVERDOSE [None]
